FAERS Safety Report 25298727 (Version 1)
Quarter: 2025Q2

REPORT INFORMATION
  Report Type: Spontaneous
  Country: TR (occurrence: TR)
  Receive Date: 20250512
  Receipt Date: 20250512
  Transmission Date: 20250716
  Serious: Yes (Hospitalization)
  Sender: MANKIND PHARMA
  Company Number: TR-MankindUS-000382

PATIENT
  Age: 54 Year
  Sex: Male

DRUGS (2)
  1. LIDOCAINE HYDROCHLORIDE [Suspect]
     Active Substance: LIDOCAINE HYDROCHLORIDE
     Indication: Induction of anaesthesia
  2. PRILOCAINE [Suspect]
     Active Substance: PRILOCAINE
     Indication: Induction of anaesthesia

REACTIONS (1)
  - Myoclonus [Recovered/Resolved]
